FAERS Safety Report 6361897-1 (Version None)
Quarter: 2009Q3

REPORT INFORMATION
  Report Type: 
  Country: None (occurrence: None)
  Receive Date: 20090918
  Receipt Date: 20090914
  Transmission Date: 20100115
  Serious: Yes (Life-Threatening, Hospitalization, Disabling, Congenital Anomaly)
  Sender: FDA-Public Use
  Company Number: JP-ASTRAZENECA-2009SE12509

PATIENT
  Sex: Male

DRUGS (2)
  1. BLOPRESS [Suspect]
     Route: 064
     Dates: end: 20090817
  2. ANTIPSYCHOTICS [Concomitant]
     Route: 064

REACTIONS (7)
  - ANURIA [None]
  - CAESAREAN SECTION [None]
  - CONGENITAL RENAL DISORDER [None]
  - DIALYSIS [None]
  - FLUID RETENTION [None]
  - LUNG DISORDER [None]
  - OLIGOHYDRAMNIOS [None]
